FAERS Safety Report 18020110 (Version 1)
Quarter: 2020Q3

REPORT INFORMATION
  Report Type: Spontaneous
  Country: US (occurrence: US)
  Receive Date: 20200714
  Receipt Date: 20200714
  Transmission Date: 20201103
  Serious: No
  Sender: FDA-Public Use
  Company Number: None

PATIENT
  Sex: Male

DRUGS (1)
  1. NEULASTA [Suspect]
     Active Substance: PEGFILGRASTIM
     Indication: HYPOPITUITARISM
     Dosage: ?          OTHER FREQUENCY:EVERY 3 WEEKS;?
     Route: 030
     Dates: start: 20200118

REACTIONS (1)
  - Neurological symptom [None]
